FAERS Safety Report 5558174-5 (Version None)
Quarter: 2007Q4

REPORT INFORMATION
  Report Type: 
  Country: None (occurrence: None)
  Receive Date: 20071214
  Receipt Date: 20071207
  Transmission Date: 20080405
  Serious: Yes (Other)
  Sender: FDA-Public Use
  Company Number: US-PFIZER INC-2007090166

PATIENT
  Age: 42 Year
  Sex: Male

DRUGS (6)
  1. GEODON [Suspect]
     Indication: SCHIZOAFFECTIVE DISORDER
  2. GEODON [Interacting]
     Indication: SCHIZOPHRENIA
  3. HALDOL [Interacting]
  4. CLONOPIN [Interacting]
  5. COGENTIN [Interacting]
  6. ZYPREXA [Concomitant]

REACTIONS (9)
  - DIZZINESS [None]
  - DRUG INTERACTION [None]
  - HEAD DISCOMFORT [None]
  - INDIFFERENCE [None]
  - NERVOUSNESS [None]
  - PSYCHOTIC BEHAVIOUR [None]
  - SOMNOLENCE [None]
  - SPEECH DISORDER [None]
  - TREMOR [None]
